FAERS Safety Report 20662764 (Version 1)
Quarter: 2022Q1

REPORT INFORMATION
  Report Type: Spontaneous
  Country: US (occurrence: None)
  Receive Date: 20220331
  Receipt Date: 20220331
  Transmission Date: 20220423
  Serious: Yes (Other)
  Sender: FDA-Public Use
  Company Number: None

PATIENT
  Age: 51 Year
  Sex: Male

DRUGS (1)
  1. SUBOXONE [Suspect]
     Active Substance: BUPRENORPHINE HYDROCHLORIDE\NALOXONE HYDROCHLORIDE
     Indication: Drug withdrawal syndrome
     Dosage: OTHER QUANTITY : 1 30;?FREQUENCY : DAILY;?
     Route: 060
     Dates: start: 20150301, end: 20220331

REACTIONS (3)
  - Tooth injury [None]
  - Loose tooth [None]
  - Dental caries [None]

NARRATIVE: CASE EVENT DATE: 20190301
